FAERS Safety Report 10088858 (Version 1)
Quarter: 2014Q2

REPORT INFORMATION
  Report Type: Spontaneous
  Country: US (occurrence: US)
  Receive Date: 20140421
  Receipt Date: 20140421
  Transmission Date: 20141212
  Serious: Yes (Other)
  Sender: FDA-Public Use
  Company Number: US-JNJFOC-20140406718

PATIENT
  Sex: Male
  Weight: 65.77 kg

DRUGS (11)
  1. LEVAQUIN [Suspect]
     Indication: RELAPSING FEVER
     Route: 048
     Dates: start: 201302, end: 2013
  2. LEVAQUIN [Suspect]
     Indication: RELAPSING FEVER
     Route: 048
  3. LEVAQUIN [Suspect]
     Indication: RESPIRATORY DISORDER
     Route: 048
  4. LEVAQUIN [Suspect]
     Indication: RESPIRATORY DISORDER
     Route: 048
     Dates: start: 201302, end: 2013
  5. PREDNISONE [Suspect]
     Indication: POLYMYALGIA RHEUMATICA
     Route: 048
     Dates: start: 201311, end: 201403
  6. PREDNISONE [Suspect]
     Indication: POLYMYALGIA RHEUMATICA
     Route: 048
     Dates: start: 201403, end: 201403
  7. PREDNISONE [Suspect]
     Indication: POLYMYALGIA RHEUMATICA
     Route: 048
     Dates: start: 201403, end: 201403
  8. AMLODIPINE [Concomitant]
     Indication: STRESS
     Route: 048
  9. AMLODIPINE [Concomitant]
     Indication: CARDIAC DISORDER
     Route: 048
  10. ENALAPRIL [Concomitant]
     Indication: BLOOD PRESSURE
     Route: 048
  11. FINASTERIDE [Concomitant]
     Indication: PROSTATIC DISORDER
     Route: 048

REACTIONS (6)
  - Sciatica [Recovered/Resolved]
  - Polymyalgia rheumatica [Unknown]
  - Tendonitis [Recovered/Resolved]
  - Blood glucose increased [Recovered/Resolved]
  - Swelling [Not Recovered/Not Resolved]
  - Abnormal faeces [Not Recovered/Not Resolved]
